FAERS Safety Report 7397876-5 (Version None)
Quarter: 2011Q2

REPORT INFORMATION
  Report Type: 
  Country: None (occurrence: None)
  Receive Date: 20110406
  Receipt Date: 20110328
  Transmission Date: 20111010
  Serious: Yes (Other)
  Sender: FDA-Public Use
  Company Number: JP-ASTRAZENECA-2011SE18101

PATIENT
  Sex: Female

DRUGS (2)
  1. CLARITHROMYCIN [Concomitant]
     Route: 048
  2. SYMBICORT [Suspect]
     Indication: ASTHMA
     Dosage: 1 DOSAGE FORM, FOUR TIMES A DAY.
     Route: 055

REACTIONS (1)
  - DRUG ERUPTION [None]
